FAERS Safety Report 7943629-6 (Version None)
Quarter: 2011Q4

REPORT INFORMATION
  Report Type: 
  Country: None (occurrence: None)
  Receive Date: 20111128
  Receipt Date: 20110930
  Transmission Date: 20120403
  Serious: No
  Sender: FDA-Public Use
  Company Number: US-BAYER-2011-095054

PATIENT

DRUGS (3)
  1. ACETAMINOPHEN [Concomitant]
     Dosage: 2 DF, UNK
  2. IBUPROFEN (ADVIL) [Suspect]
     Dosage: 1 DF, UNK
  3. ALEVE (CAPLET) [Suspect]
     Dosage: 2 DF, UNK

REACTIONS (1)
  - NO ADVERSE EVENT [None]
